FAERS Safety Report 4299000-4 (Version None)
Quarter: 2004Q1

REPORT INFORMATION
  Report Type: 
  Country: None (occurrence: None)
  Receive Date: 20040217
  Receipt Date: 20040206
  Transmission Date: 20041129
  Serious: Yes (Hospitalization)
  Sender: FDA-Public Use
  Company Number: 2004GB00339

PATIENT
  Age: 70 Year
  Sex: Male

DRUGS (1)
  1. ZOLADEX [Suspect]
     Dosage: 3.6 MG MONTH SQ

REACTIONS (1)
  - JAUNDICE CHOLESTATIC [None]
